FAERS Safety Report 9688448 (Version 1)
Quarter: 2013Q4

REPORT INFORMATION
  Report Type: Spontaneous
  Country: NO (occurrence: NO)
  Receive Date: 20131114
  Receipt Date: 20131114
  Transmission Date: 20140711
  Serious: Yes (Life-Threatening, Hospitalization)
  Sender: FDA-Public Use
  Company Number: NO-ASTRAZENECA-2013SE82821

PATIENT
  Age: 59 Year
  Sex: Male

DRUGS (9)
  1. BRILIQUE [Suspect]
     Indication: PERCUTANEOUS CORONARY INTERVENTION
     Route: 048
     Dates: start: 20131008, end: 20131029
  2. ALBYL-E [Suspect]
     Indication: PERCUTANEOUS CORONARY INTERVENTION
     Route: 048
     Dates: start: 20131008, end: 20131029
  3. MAREVAN [Suspect]
     Indication: ATRIAL FIBRILLATION
     Route: 048
     Dates: end: 20131029
  4. MULTAQ [Concomitant]
     Indication: ATRIAL FIBRILLATION
     Route: 048
     Dates: end: 20131029
  5. METFORMIN [Concomitant]
     Indication: DIABETES MELLITUS
     Route: 048
     Dates: end: 20131029
  6. LIPITOR [Concomitant]
     Indication: HYPERCHOLESTEROLAEMIA
     Route: 048
     Dates: end: 20131029
  7. AMARYL [Concomitant]
     Indication: DIABETES MELLITUS
     Route: 048
     Dates: end: 20131029
  8. COZAAR COMP FORTE [Concomitant]
     Indication: HYPERTENSION
     Dosage: 1 DF EVERY DAY, 100 MG LOSARTAN AND 25 MG HYDROCHLOROTHIAZIDE DAILY
     Route: 048
     Dates: end: 20131029
  9. METOPROLOL SANDOZ [Concomitant]
     Route: 048
     Dates: end: 20131029

REACTIONS (4)
  - Depressed level of consciousness [Unknown]
  - Haemorrhage intracranial [Unknown]
  - Headache [Unknown]
  - Haemorrhage [Unknown]
